FAERS Safety Report 18713081 (Version 1)
Quarter: 2021Q1

REPORT INFORMATION
  Report Type: Spontaneous
  Country: TR (occurrence: TR)
  Receive Date: 20210107
  Receipt Date: 20210107
  Transmission Date: 20210419
  Serious: Yes (Hospitalization)
  Sender: FDA-Public Use
  Company Number: TR-AMERICAN REGENT INC-2021000027

PATIENT

DRUGS (1)
  1. FERINJECT [Suspect]
     Active Substance: FERRIC CARBOXYMALTOSE
     Indication: PRODUCT USED FOR UNKNOWN INDICATION
     Dosage: 2 FERINJECT VIALS

REACTIONS (4)
  - Pyrexia [Unknown]
  - C-reactive protein increased [Unknown]
  - Fibrin D dimer increased [Unknown]
  - Lymphopenia [Unknown]
